FAERS Safety Report 20128949 (Version 2)
Quarter: 2021Q4

REPORT INFORMATION
  Report Type: Spontaneous
  Country: AU (occurrence: None)
  Receive Date: 20211130
  Receipt Date: 20211220
  Transmission Date: 20220303
  Serious: Yes (Life-Threatening, Hospitalization)
  Sender: FDA-Public Use
  Company Number: 2021A837528

PATIENT
  Sex: Female
  Weight: 88 kg

DRUGS (4)
  1. LYNPARZA [Suspect]
     Active Substance: OLAPARIB
     Indication: Ovarian cancer
     Route: 048
     Dates: start: 201910, end: 20210825
  2. PACLITAXEL/CARBOPLATIN [Concomitant]
     Dates: start: 20170802, end: 20170828
  3. BEVACIZUMAB [Concomitant]
     Active Substance: BEVACIZUMAB
     Dates: start: 20170915, end: 20180727
  4. GEMCITABINE/CARBOPLATIN [Concomitant]
     Dates: start: 20180727, end: 20181019

REACTIONS (1)
  - Myelodysplastic syndrome [Not Recovered/Not Resolved]
